FAERS Safety Report 20184991 (Version 1)
Quarter: 2021Q4

REPORT INFORMATION
  Report Type: Spontaneous
  Country: US (occurrence: US)
  Receive Date: 20211214
  Receipt Date: 20211214
  Transmission Date: 20220303
  Serious: No
  Sender: FDA-Public Use
  Company Number: US-GLAXOSMITHKLINE-USCH2021088307

PATIENT
  Age: 69 Year
  Sex: Female

DRUGS (6)
  1. NICODERM CQ [Suspect]
     Active Substance: NICOTINE
     Indication: Smoking cessation therapy
     Dosage: UNK
  2. NICODERM CQ [Suspect]
     Active Substance: NICOTINE
     Indication: Smoking cessation therapy
     Dosage: UNK
  3. NICODERM CQ [Suspect]
     Active Substance: NICOTINE
  4. NICODERM CQ [Suspect]
     Active Substance: NICOTINE
     Indication: Smoking cessation therapy
     Dosage: UNK
  5. NICODERM CQ [Suspect]
     Active Substance: NICOTINE
  6. NICODERM CQ [Suspect]
     Active Substance: NICOTINE

REACTIONS (3)
  - Insomnia [Unknown]
  - Abnormal dreams [Unknown]
  - Middle insomnia [Unknown]
